FAERS Safety Report 9242224 (Version 1)
Quarter: 2013Q2

REPORT INFORMATION
  Report Type: Report from Study
  Country: US (occurrence: US)
  Receive Date: 20130419
  Receipt Date: 20130419
  Transmission Date: 20140414
  Serious: Yes (Hospitalization, Other)
  Sender: FDA-Public Use
  Company Number: US-ABBOTT-13P-163-1075192-00

PATIENT
  Age: 37 Year
  Sex: Male

DRUGS (30)
  1. HUMIRA [Suspect]
     Indication: CROHN^S DISEASE
  2. HUMIRA [Suspect]
     Dosage: STARTER PACK
     Dates: start: 20130118
  3. HUMIRA [Suspect]
     Dosage: SECOND LOADING DOSE
     Dates: start: 20130201, end: 20130201
  4. HUMIRA [Suspect]
     Dates: start: 20130301
  5. FLECTOR [Concomitant]
     Indication: BACK PAIN
     Dosage: PATCHES
  6. FLECTOR [Concomitant]
     Indication: ARTHRALGIA
  7. ALLOPURINOL [Concomitant]
     Indication: PRODUCT USED FOR UNKNOWN INDICATION
  8. XANAX [Concomitant]
     Indication: PRODUCT USED FOR UNKNOWN INDICATION
     Dosage: UP TO 1-2 DOSAGE FORMS ONCE DAILY
  9. ADDERALL [Concomitant]
     Indication: PRODUCT USED FOR UNKNOWN INDICATION
     Dosage: 1-2 DOSAGE FORMS ONCE DAILY
  10. IMURAN [Concomitant]
     Indication: PRODUCT USED FOR UNKNOWN INDICATION
  11. COLESTID [Concomitant]
     Indication: PRODUCT USED FOR UNKNOWN INDICATION
  12. B-12 [Concomitant]
     Indication: PRODUCT USED FOR UNKNOWN INDICATION
  13. TESTOSTERONE [Concomitant]
     Indication: PRODUCT USED FOR UNKNOWN INDICATION
  14. DIAZEPAM [Concomitant]
     Indication: PRODUCT USED FOR UNKNOWN INDICATION
     Dosage: 2-3 DOSAGE FORMS ONCE DAILY
  15. AMBIEN [Concomitant]
     Indication: SLEEP DISORDER
     Dosage: AT BEDTIME AS REQUIRED
  16. LUNESTA [Concomitant]
     Indication: PRODUCT USED FOR UNKNOWN INDICATION
     Dosage: AT BEDTIME
  17. LOMOTIL [Concomitant]
     Indication: PRODUCT USED FOR UNKNOWN INDICATION
     Dosage: 1-2 DOSAGE FORMS FOUR TIMES DAILY
  18. VIT D-2 [Concomitant]
     Indication: PRODUCT USED FOR UNKNOWN INDICATION
     Dosage: FROM ONCE PER WEEK TO ONCE PER MONTH
  19. FOLIC ACID [Concomitant]
     Indication: PRODUCT USED FOR UNKNOWN INDICATION
  20. HYDROCODONE [Concomitant]
     Indication: BACK PAIN
     Dosage: 7.5/750 MG ONCE EVERY 6-8 HOURS PRN
  21. HYDROCODONE [Concomitant]
     Indication: SCIATICA
  22. OXYCODONE [Concomitant]
     Indication: PAIN
     Dosage: ONCE EVERY 6 HOURS PRN, MAY DOUBLE UP FOR EXTRA PAIN PRN
  23. OXYCODONE [Concomitant]
     Dosage: ONCE EVERY 8 HOURS PRN
  24. PENTASA [Concomitant]
     Indication: PRODUCT USED FOR UNKNOWN INDICATION
  25. MULTIVITAMIN [Concomitant]
     Indication: PRODUCT USED FOR UNKNOWN INDICATION
  26. OMEPRAZOLE [Concomitant]
     Indication: PRODUCT USED FOR UNKNOWN INDICATION
  27. POTASSIUM [Concomitant]
     Indication: PRODUCT USED FOR UNKNOWN INDICATION
  28. SEROQUEL [Concomitant]
     Indication: PRODUCT USED FOR UNKNOWN INDICATION
     Dosage: AT BEDTIME
  29. ZANAFLEX [Concomitant]
     Indication: MUSCLE RELAXANT THERAPY
     Dosage: UP TO 3 PER DAY
  30. PROZAC [Concomitant]
     Indication: PRODUCT USED FOR UNKNOWN INDICATION

REACTIONS (25)
  - Joint injury [Unknown]
  - Crohn^s disease [Unknown]
  - Crohn^s disease [Unknown]
  - Clostridium difficile infection [Unknown]
  - Pneumonia [Not Recovered/Not Resolved]
  - Pyrexia [Unknown]
  - Sciatica [Unknown]
  - Incoherent [Unknown]
  - Sciatica [Unknown]
  - Arthritis [Unknown]
  - Intervertebral disc degeneration [Unknown]
  - Cervical spinal stenosis [Unknown]
  - Spinal cord compression [Unknown]
  - Fluid retention [Unknown]
  - Gastrointestinal obstruction [Unknown]
  - Abscess [Unknown]
  - Diarrhoea [Unknown]
  - Haematochezia [Unknown]
  - Abdominal pain lower [Unknown]
  - Abdominal pain [Unknown]
  - Anxiety [Unknown]
  - Memory impairment [Unknown]
  - Pain in extremity [Unknown]
  - Burning sensation [Unknown]
  - Meningitis [Unknown]
